FAERS Safety Report 23657191 (Version 1)
Quarter: 2024Q1

REPORT INFORMATION
  Report Type: Spontaneous
  Country: US (occurrence: US)
  Receive Date: 20240321
  Receipt Date: 20240321
  Transmission Date: 20240410
  Serious: Yes (Hospitalization, Other)
  Sender: FDA-Public Use
  Company Number: US-PFIZER INC-PV202400037143

PATIENT

DRUGS (1)
  1. TIKOSYN [Suspect]
     Active Substance: DOFETILIDE
     Dosage: AT EXACTLY 9 IN THE MORNING AND 9 AT NIGHT

REACTIONS (2)
  - Neoplasm malignant [Unknown]
  - Obstruction [Unknown]

NARRATIVE: CASE EVENT DATE: 20231001
